FAERS Safety Report 17043762 (Version 3)
Quarter: 2023Q2

REPORT INFORMATION
  Report Type: Spontaneous
  Country: JP (occurrence: JP)
  Receive Date: 20191118
  Receipt Date: 20230428
  Transmission Date: 20230722
  Serious: Yes (Hospitalization, Other)
  Sender: FDA-Public Use
  Company Number: JP-PFIZER INC-2019341531

PATIENT
  Age: 71 Year
  Sex: Female
  Weight: 54.3 kg

DRUGS (5)
  1. LORBRENA [Suspect]
     Active Substance: LORLATINIB
     Indication: Non-small cell lung cancer
     Dosage: 100 MG, 1X/DAY
     Route: 048
     Dates: start: 20190614, end: 20190806
  2. NEXIUM [Concomitant]
     Active Substance: ESOMEPRAZOLE MAGNESIUM
     Indication: Gastric ulcer
     Dosage: 10 MG, 1X/DAY
     Route: 048
  3. ZOLPIDEM [Concomitant]
     Active Substance: ZOLPIDEM TARTRATE
     Indication: Insomnia
     Dosage: 5 MG, 1X/DAY
     Route: 048
  4. TRAMCET [Concomitant]
     Active Substance: ACETAMINOPHEN\TRAMADOL
     Indication: Back pain
     Dosage: UNK, 4X/DAY
     Route: 048
  5. CRESTOR [Concomitant]
     Active Substance: ROSUVASTATIN CALCIUM
     Indication: Dyslipidaemia
     Dosage: 10 (UNIT UNKNOWN), 1X/DAY
     Route: 048

REACTIONS (5)
  - Diarrhoea [Recovered/Resolved]
  - Stress cardiomyopathy [Recovered/Resolved]
  - Cardiac failure [Unknown]
  - Dyspnoea [Unknown]
  - Dysphoria [Unknown]

NARRATIVE: CASE EVENT DATE: 20190804
